FAERS Safety Report 8302410-9 (Version None)
Quarter: 2012Q2

REPORT INFORMATION
  Report Type: 
  Country: None (occurrence: None)
  Receive Date: 20120420
  Receipt Date: 20120410
  Transmission Date: 20120825
  Serious: Yes (Hospitalization)
  Sender: FDA-Public Use
  Company Number: PT-BAXTER-2012BAX001883

PATIENT
  Sex: Male

DRUGS (3)
  1. PHYSIONEAL 40 GLUCOSE 2,27% P/V / 22,7 MG/ML [Suspect]
     Route: 033
     Dates: start: 20110920, end: 20120330
  2. EXTRANEAL [Suspect]
     Route: 033
     Dates: start: 20110920, end: 20120330
  3. PHYSIONEAL 40 GLUCOSE 1,36% P/V / 13,6 MG/ML [Suspect]
     Route: 033
     Dates: start: 20110920, end: 20120330

REACTIONS (3)
  - INTESTINAL OBSTRUCTION [None]
  - SEPSIS [None]
  - ILEUS PARALYTIC [None]
